FAERS Safety Report 9790417 (Version 2)
Quarter: 2013Q4

REPORT INFORMATION
  Report Type: Spontaneous
  Country: JP (occurrence: JP)
  Receive Date: 20131231
  Receipt Date: 20131231
  Transmission Date: 20140711
  Serious: Yes (Death)
  Sender: FDA-Public Use
  Company Number: JP-MALLINCKRODT-T201304912

PATIENT
  Age: 58 Year
  Sex: Male
  Weight: 44.9 kg

DRUGS (8)
  1. METHADONE [Suspect]
     Indication: CANCER PAIN
     Dosage: 5 MG, (15MG DAILY DOSE)
     Route: 048
     Dates: start: 20130810, end: 20130921
  2. OXINORM                            /00045603/ [Concomitant]
     Dosage: 10 MG, PRN
     Route: 048
     Dates: start: 20130809, end: 20130814
  3. CALONAL [Concomitant]
     Dosage: 2400 MG, UNK
     Route: 048
     Dates: start: 20130226, end: 20130921
  4. GASTER D [Concomitant]
     Dosage: 40 MG, UNK
     Route: 048
     Dates: start: 20130226, end: 20130921
  5. MAGMITT [Concomitant]
     Dosage: 1980 MG, UNK
     Route: 048
     Dates: start: 20130226, end: 20130921
  6. LOXONIN [Concomitant]
     Dosage: 180 MG, UNK
     Route: 048
     Dates: start: 20130712, end: 20130921
  7. LENDORMIN [Concomitant]
     Dosage: 0.25 MG, UNK
     Route: 048
     Dates: start: 20130220, end: 20130921
  8. MYONAL                             /01071502/ [Concomitant]
     Dosage: 150 MG, UNK
     Route: 048
     Dates: start: 20130627, end: 20130921

REACTIONS (1)
  - Gingival cancer [Fatal]
